FAERS Safety Report 6588159-1 (Version None)
Quarter: 2010Q1

REPORT INFORMATION
  Report Type: 
  Country: None (occurrence: None)
  Receive Date: 20100218
  Receipt Date: 20090302
  Transmission Date: 20100710
  Serious: No
  Sender: FDA-Public Use
  Company Number: US-ASTRAZENECA-2009UW05773

PATIENT
  Sex: Female
  Weight: 72.6 kg

DRUGS (2)
  1. FELODIPINE [Suspect]
     Indication: HYPERTENSION
     Route: 048
  2. PLAVIX [Concomitant]

REACTIONS (4)
  - BLOOD PRESSURE ABNORMAL [None]
  - DIZZINESS [None]
  - DYSSTASIA [None]
  - MUSCULAR WEAKNESS [None]
